FAERS Safety Report 16887579 (Version 1)
Quarter: 2019Q4

REPORT INFORMATION
  Report Type: Report from Study
  Country: FR (occurrence: FR)
  Receive Date: 20191005
  Receipt Date: 20191005
  Transmission Date: 20200122
  Serious: Yes (Hospitalization, Other)
  Sender: FDA-Public Use
  Company Number: FR-BRISTOL-MYERS SQUIBB COMPANY-BMS-2019-093432

PATIENT
  Age: 5 Year
  Sex: Female

DRUGS (1)
  1. DASATINIB. [Suspect]
     Active Substance: DASATINIB
     Indication: BRAIN STEM GLIOMA
     Route: 065

REACTIONS (1)
  - Hydrocephalus [Not Recovered/Not Resolved]

NARRATIVE: CASE EVENT DATE: 20190923
